FAERS Safety Report 6195195-6 (Version None)
Quarter: 2009Q2

REPORT INFORMATION
  Report Type: 
  Country: None (occurrence: None)
  Receive Date: 20090519
  Receipt Date: 20090508
  Transmission Date: 20091009
  Serious: Yes (Hospitalization, Other)
  Sender: FDA-Public Use
  Company Number: US-MERCK-0902USA01608

PATIENT
  Age: 80 Year
  Sex: Female

DRUGS (3)
  1. FOSAMAX [Suspect]
     Indication: OSTEOPOROSIS
     Route: 048
     Dates: start: 20061006, end: 20071030
  2. NABUMETONE [Concomitant]
     Indication: ARTHRITIS
     Route: 065
     Dates: start: 20030101
  3. LORAZEPAM [Concomitant]
     Route: 065
     Dates: start: 19950101

REACTIONS (10)
  - ANXIETY [None]
  - BONE DISORDER [None]
  - BREAST CANCER [None]
  - DEPRESSION [None]
  - EDENTULOUS [None]
  - HYPERTENSION [None]
  - ORAL INFECTION [None]
  - ORAL PAIN [None]
  - OSTEONECROSIS [None]
  - OSTEORADIONECROSIS [None]
